FAERS Safety Report 4368600-5 (Version None)
Quarter: 2004Q2

REPORT INFORMATION
  Report Type: 
  Country: None (occurrence: None)
  Receive Date: 20040528
  Receipt Date: 20040415
  Transmission Date: 20050107
  Serious: Yes (Other)
  Sender: FDA-Public Use
  Company Number: 230825

PATIENT
  Age: 49 Year
  Sex: Female
  Weight: 60 kg

DRUGS (4)
  1. NOVOMIX 30 FLEXPEN (INSULIN ASPART) SUSPENSION FOR INJECTION, 100 U/ML [Suspect]
     Indication: DIABETES MELLITUS
     Dosage: 14 IU, QD, SUBCUTANEOUS
     Route: 058
     Dates: start: 20021218, end: 20030501
  2. NOVORAPID FLEXPEN (INSULIN ASPART) SOLUTION FOR INJECTION, 100 U/ML [Suspect]
     Indication: DIABETES MELLITUS
     Dosage: 20 IU, QD, SUBCUTANEOUS
     Route: 058
     Dates: start: 20021218
  3. CYCLEANE (ETHINYLESTRADIOL, DESOGESTREL) [Concomitant]
  4. GLUCOPHAGE [Concomitant]

REACTIONS (6)
  - BURNING SENSATION [None]
  - COUGH [None]
  - DRUG HYPERSENSITIVITY [None]
  - DRUG INTOLERANCE [None]
  - PARAESTHESIA [None]
  - TACHYCARDIA [None]
